FAERS Safety Report 24622090 (Version 1)
Quarter: 2024Q4

REPORT INFORMATION
  Report Type: Spontaneous
  Country: CN (occurrence: CN)
  Receive Date: 20241114
  Receipt Date: 20241114
  Transmission Date: 20250114
  Serious: Yes (Hospitalization)
  Sender: BAUSCH AND LOMB
  Company Number: CN-BAUSCHBL-2024BNL037293

PATIENT
  Age: 72 Year
  Sex: Male

DRUGS (1)
  1. CARTEOLOL HYDROCHLORIDE [Suspect]
     Active Substance: CARTEOLOL HYDROCHLORIDE
     Indication: Glaucoma
     Route: 047
     Dates: start: 20241007, end: 20241016

REACTIONS (2)
  - Ocular hyperaemia [Recovering/Resolving]
  - Cardiac discomfort [Recovering/Resolving]

NARRATIVE: CASE EVENT DATE: 20241016
